FAERS Safety Report 7240265-4 (Version None)
Quarter: 2011Q1

REPORT INFORMATION
  Report Type: 
  Country: None (occurrence: None)
  Receive Date: 20110113
  Receipt Date: 20101230
  Transmission Date: 20110831
  Serious: Yes (Other)
  Sender: FDA-Public Use
  Company Number: 023552

PATIENT
  Age: 13 Year
  Sex: Male
  Weight: 31.2 kg

DRUGS (6)
  1. PRED FORTE [Suspect]
     Indication: PRODUCT USED FOR UNKNOWN INDICATION
     Dosage: (OPHTHALMIC)
     Route: 047
  2. EQUASYM (EQUASYM XL) [Suspect]
     Indication: ATTENTION DEFICIT/HYPERACTIVITY DISORDER
     Dosage: (50 MG QD ORAL)
     Route: 048
     Dates: start: 20060901
  3. EQUASYM (EQUASYM XL) [Suspect]
     Indication: AUTISM
     Dosage: (50 MG QD ORAL)
     Route: 048
     Dates: start: 20060901
  4. RISPERIDONE [Suspect]
     Indication: ATTENTION DEFICIT/HYPERACTIVITY DISORDER
     Dosage: (0.5 MG ORAL)
     Route: 048
     Dates: start: 20060601
  5. RISPERIDONE [Suspect]
     Indication: AUTISM
     Dosage: (0.5 MG ORAL)
     Route: 048
     Dates: start: 20060601
  6. VEXOL [Suspect]
     Indication: PRODUCT USED FOR UNKNOWN INDICATION
     Dosage: (OPHTHALMIC)
     Route: 047

REACTIONS (11)
  - CSF PRESSURE INCREASED [None]
  - VISUAL FIELD DEFECT [None]
  - EYE SWELLING [None]
  - VISUAL IMPAIRMENT [None]
  - EYE PAIN [None]
  - EYELID OEDEMA [None]
  - OCULAR HYPERAEMIA [None]
  - CONJUNCTIVITIS [None]
  - BENIGN INTRACRANIAL HYPERTENSION [None]
  - EYE PRURITUS [None]
  - PAPILLOEDEMA [None]
